FAERS Safety Report 14696028 (Version 1)
Quarter: 2018Q1

REPORT INFORMATION
  Report Type: Spontaneous
  Country: LB (occurrence: LB)
  Receive Date: 20180329
  Receipt Date: 20180329
  Transmission Date: 20180509
  Serious: Yes (Hospitalization)
  Sender: FDA-Public Use
  Company Number: PHHY2018LB045872

PATIENT
  Age: 51 Year
  Sex: Male

DRUGS (1)
  1. METHOTREXATE. [Suspect]
     Active Substance: METHOTREXATE
     Indication: PSORIASIS
     Dosage: 20 MG, QW
     Route: 048

REACTIONS (13)
  - Mouth ulceration [Unknown]
  - Oral mucosa erosion [Unknown]
  - Pyrexia [Unknown]
  - Neutropenia [Recovered/Resolved]
  - Skin ulcer [Unknown]
  - Overdose [Unknown]
  - Toxicity to various agents [Unknown]
  - Psoriasis [Unknown]
  - Rash pustular [Unknown]
  - Pain [Unknown]
  - Headache [Unknown]
  - Skin lesion [Unknown]
  - Altered state of consciousness [Unknown]
